FAERS Safety Report 10884147 (Version 1)
Quarter: 2015Q1

REPORT INFORMATION
  Report Type: Spontaneous
  Country: US (occurrence: US)
  Receive Date: 20150304
  Receipt Date: 20150304
  Transmission Date: 20150721
  Serious: Yes (Hospitalization, Other)
  Sender: FDA-Public Use
  Company Number: US-BIOGENIDEC-2015BI018222

PATIENT
  Age: 41 Year
  Sex: Female
  Weight: 88 kg

DRUGS (9)
  1. COENZYME Q10 [Concomitant]
     Active Substance: UBIDECARENONE
  2. VITAMIN D [Concomitant]
     Active Substance: CHOLECALCIFEROL
  3. TECFIDERA [Suspect]
     Active Substance: DIMETHYL FUMARATE
     Indication: RELAPSING-REMITTING MULTIPLE SCLEROSIS
     Route: 048
     Dates: start: 20130619, end: 20141103
  4. ZYRTEC [Concomitant]
     Active Substance: CETIRIZINE HYDROCHLORIDE
  5. TECFIDERA [Suspect]
     Active Substance: DIMETHYL FUMARATE
     Indication: RELAPSING-REMITTING MULTIPLE SCLEROSIS
     Route: 048
  6. BENADRYL CREAM [Concomitant]
     Route: 061
  7. BENADRYL [Concomitant]
     Active Substance: DIPHENHYDRAMINE HYDROCHLORIDE
  8. PREDNISONE. [Concomitant]
     Active Substance: PREDNISONE
  9. CLARITIN [Concomitant]
     Active Substance: LORATADINE

REACTIONS (5)
  - Angioedema [Unknown]
  - Urticaria [Unknown]
  - Intentional product use issue [Unknown]
  - Hot flush [Unknown]
  - Lip swelling [Unknown]

NARRATIVE: CASE EVENT DATE: 20140918
